FAERS Safety Report 6131753-2 (Version None)
Quarter: 2009Q1

REPORT INFORMATION
  Report Type: 
  Country: None (occurrence: None)
  Receive Date: 20090325
  Receipt Date: 20090317
  Transmission Date: 20090719
  Serious: Yes (Hospitalization)
  Sender: FDA-Public Use
  Company Number: US-BIOGENIDEC-2007BI017485

PATIENT
  Age: 49 Year
  Sex: Female

DRUGS (2)
  1. AVONEX [Suspect]
     Indication: MULTIPLE SCLEROSIS
     Route: 030
     Dates: start: 20000301, end: 20030101
  2. AVONEX [Suspect]
     Route: 030
     Dates: start: 20030101

REACTIONS (13)
  - APHASIA [None]
  - CEREBRAL HAEMORRHAGE TRAUMATIC [None]
  - EMBOLIC STROKE [None]
  - GAIT DISTURBANCE [None]
  - LIMB CRUSHING INJURY [None]
  - LOWER LIMB FRACTURE [None]
  - MUSCULOSKELETAL DISORDER [None]
  - PAIN [None]
  - PAIN IN EXTREMITY [None]
  - ROAD TRAFFIC ACCIDENT [None]
  - SPINAL FRACTURE [None]
  - UPPER LIMB FRACTURE [None]
  - WRIST FRACTURE [None]
